FAERS Safety Report 24041736 (Version 1)
Quarter: 2024Q3

REPORT INFORMATION
  Report Type: Spontaneous
  Country: US (occurrence: None)
  Receive Date: 20240701
  Receipt Date: 20240701
  Transmission Date: 20241016
  Serious: No
  Sender: Public
  Company Number: None

PATIENT
  Age: 55 Year
  Sex: Female
  Weight: 66.6 kg

DRUGS (6)
  1. RHOPRESSA [Suspect]
     Active Substance: NETARSUDIL MESYLATE
     Indication: Glaucoma
     Dosage: 2.5 DROPS AT BEDTIME OPHTHALMIC ?
     Route: 047
     Dates: start: 20240227, end: 20240524
  2. LATANOPROST [Concomitant]
     Active Substance: LATANOPROST
  3. TIMOLOL [Concomitant]
     Active Substance: TIMOLOL
  4. SIMBREZA [Concomitant]
  5. VITAMIN D3 [Concomitant]
     Active Substance: CHOLECALCIFEROL
  6. COSTCO ZESTED ALLERGY MEDICATION [Concomitant]

REACTIONS (5)
  - Instillation site reaction [None]
  - Eye pruritus [None]
  - Ocular hyperaemia [None]
  - Eye inflammation [None]
  - Therapy cessation [None]

NARRATIVE: CASE EVENT DATE: 20240524
